FAERS Safety Report 7890635-6 (Version None)
Quarter: 2011Q4

REPORT INFORMATION
  Report Type: 
  Country: None (occurrence: None)
  Receive Date: 20111103
  Receipt Date: 20111025
  Transmission Date: 20120403
  Serious: Yes (Other)
  Sender: FDA-Public Use
  Company Number: CN-ASTRAZENECA-2011SE64353

PATIENT
  Sex: Female

DRUGS (4)
  1. PROPOFOL [Suspect]
     Route: 042
  2. PROPOFOL [Suspect]
     Indication: ANAESTHESIA
     Route: 042
  3. FENTANYL [Suspect]
     Indication: ANAESTHESIA
     Route: 042
  4. DEZOCINE [Suspect]
     Indication: ANAESTHESIA
     Route: 042

REACTIONS (5)
  - RESPIRATORY DEPRESSION [None]
  - DYSKINESIA [None]
  - VOMITING [None]
  - MATERNAL EXPOSURE DURING PREGNANCY [None]
  - ABORTION [None]
